FAERS Safety Report 9746475 (Version 1)
Quarter: 2013Q4

REPORT INFORMATION
  Report Type: Spontaneous
  Country: GB (occurrence: None)
  Receive Date: 20131205
  Receipt Date: 20131205
  Transmission Date: 20140711
  Serious: Yes (Hospitalization)
  Sender: FDA-Public Use
  Company Number: GB-DEXPHARM-20131117

PATIENT
  Age: 41 Year
  Sex: Male

DRUGS (1)
  1. OMEPRAZOLE [Suspect]
     Indication: GASTROOESOPHAGEAL REFLUX DISEASE
     Dosage: 80MG (2 X 40MG) PER DAY.?SEP. DOSAGES / INTERVAL: 1 IN 1 DAYS
     Route: 048

REACTIONS (8)
  - Accidental overdose [None]
  - Chest pain [None]
  - Confusional state [None]
  - Dizziness [None]
  - Headache [None]
  - Tremor [None]
  - Tachycardia [None]
  - Fatigue [None]
